FAERS Safety Report 13905447 (Version 2)
Quarter: 2019Q3

REPORT INFORMATION
  Report Type: Spontaneous
  Country: DE (occurrence: DE)
  Receive Date: 20170825
  Receipt Date: 20190704
  Transmission Date: 20191004
  Serious: Yes (Congenital Anomaly, Other)
  Sender: FDA-Public Use
  Company Number: GXKR2017DE004144

PATIENT
  Age: 1 Day
  Sex: Female
  Weight: 1.17 kg

DRUGS (4)
  1. FOLIO FORTE [Concomitant]
     Active Substance: FOLIC ACID\VITAMINS
     Indication: FOETAL EXPOSURE DURING PREGNANCY
     Dosage: MATERNAL DOSE: 0.8 MG QD
     Route: 064
     Dates: start: 20160608, end: 20161124
  2. LEVETIRACETAM. [Suspect]
     Active Substance: LEVETIRACETAM
     Indication: FOETAL EXPOSURE DURING PREGNANCY
     Dosage: MATERNAL DOSE: 2500 MG QD (1000-0-1500 MG QD)
     Route: 064
     Dates: start: 201605, end: 20161124
  3. CELESTAN [Concomitant]
     Active Substance: BETAMETHASONE
     Indication: FOETAL EXPOSURE DURING PREGNANCY
     Dosage: MATERNAL DOSE
     Route: 064
     Dates: start: 20161123, end: 20161124
  4. FOLIC ACID. [Concomitant]
     Active Substance: FOLIC ACID
     Indication: FOETAL EXPOSURE DURING PREGNANCY
     Dosage: QD
     Route: 064
     Dates: start: 20160608, end: 20161124

REACTIONS (7)
  - Foetal growth restriction [Unknown]
  - Premature baby [Unknown]
  - Cerebral haemorrhage neonatal [Recovering/Resolving]
  - Maternal exposure during pregnancy [Unknown]
  - Pulmonary valve stenosis congenital [Not Recovered/Not Resolved]
  - Atrial septal defect [Not Recovered/Not Resolved]
  - Patent ductus arteriosus [Recovered/Resolved]

NARRATIVE: CASE EVENT DATE: 2016
